FAERS Safety Report 4486560-3 (Version None)
Quarter: 2004Q4

REPORT INFORMATION
  Report Type: 
  Country: None (occurrence: None)
  Receive Date: 20041027
  Receipt Date: 20041015
  Transmission Date: 20050328
  Serious: Yes (Hospitalization, Other)
  Sender: FDA-Public Use
  Company Number: US-JNJFOC-20041004590

PATIENT
  Age: 23 Year
  Sex: Male

DRUGS (7)
  1. FENTANYL [Suspect]
     Route: 050
  2. COCAINE [Suspect]
  3. TRAMADOL HCL [Concomitant]
  4. CITALOPRAM [Concomitant]
  5. BUPROPION HCL [Concomitant]
  6. DIPHENHYDRAMINE HCL [Concomitant]
  7. EPHEDRINE SUL CAP [Concomitant]

REACTIONS (8)
  - ACUTE RESPIRATORY DISTRESS SYNDROME [None]
  - COMA [None]
  - DEEP VEIN THROMBOSIS [None]
  - HAEMOPHILUS INFECTION [None]
  - MEDICATION ERROR [None]
  - PNEUMONIA ASPIRATION [None]
  - SPUTUM CULTURE POSITIVE [None]
  - STAPHYLOCOCCAL INFECTION [None]
